FAERS Safety Report 8963978 (Version 1)
Quarter: 2012Q4

REPORT INFORMATION
  Report Type: 
  Country: PH (occurrence: PH)
  Receive Date: 20121213
  Receipt Date: 20121213
  Transmission Date: 20130627
  Serious: Yes (Other)
  Sender: FDA-Public Use
  Company Number: PHHY2012PH114800

PATIENT
  Age: 14 Year
  Sex: Female

DRUGS (2)
  1. TRILEPTAL [Suspect]
     Indication: PARTIAL SEIZURES
     Dosage: 1/2 Tab in the morning and 1 Tab in the evening
     Route: 048
     Dates: start: 20121203
  2. KEPPRA [Concomitant]

REACTIONS (3)
  - Rash maculo-papular [Recovering/Resolving]
  - Lip swelling [Recovering/Resolving]
  - Swelling face [Recovering/Resolving]
